FAERS Safety Report 5466826-0 (Version None)
Quarter: 2007Q3

REPORT INFORMATION
  Report Type: 
  Country: None (occurrence: None)
  Receive Date: 20070924
  Receipt Date: 20070924
  Transmission Date: 20080115
  Serious: Yes (Hospitalization)
  Sender: FDA-Public Use
  Company Number: None

PATIENT
  Age: 60 Year
  Sex: Male

DRUGS (2)
  1. WARFARIN SODIUM [Suspect]
     Indication: DEEP VEIN THROMBOSIS
     Dosage: 5MG EVERY DAY PO
     Route: 048
     Dates: start: 20070716
  2. CIPROFLOXACIN [Suspect]
     Indication: URINARY TRACT INFECTION
     Dosage: 500MG BID PO
     Route: 048
     Dates: start: 20070913, end: 20070918

REACTIONS (9)
  - ABDOMINAL DISTENSION [None]
  - ANOREXIA [None]
  - CONTUSION [None]
  - DRUG TOXICITY [None]
  - HAEMATURIA [None]
  - HAEMOGLOBIN DECREASED [None]
  - INTERNATIONAL NORMALISED RATIO INCREASED [None]
  - NAUSEA [None]
  - URINARY TRACT INFECTION [None]
